FAERS Safety Report 17989266 (Version 1)
Quarter: 2020Q3

REPORT INFORMATION
  Report Type: Report from Study
  Country: US (occurrence: US)
  Receive Date: 20200707
  Receipt Date: 20200707
  Transmission Date: 20201103
  Serious: Yes (Other)
  Sender: FDA-Public Use
  Company Number: US-JNJFOC-20200601738

PATIENT
  Sex: Male

DRUGS (1)
  1. STELARA [Suspect]
     Active Substance: USTEKINUMAB
     Indication: CROHN^S DISEASE
     Dosage: WEEK 4 OR 6 WEEKS
     Route: 058

REACTIONS (6)
  - Off label use [Unknown]
  - Clostridium difficile infection [Unknown]
  - Product use issue [Unknown]
  - Drug ineffective [Unknown]
  - Crohn^s disease [Unknown]
  - Gout [Unknown]
